FAERS Safety Report 24831922 (Version 1)
Quarter: 2025Q1

REPORT INFORMATION
  Report Type: Spontaneous
  Country: FR (occurrence: FR)
  Receive Date: 20250110
  Receipt Date: 20250110
  Transmission Date: 20250408
  Serious: Yes (Hospitalization)
  Sender: Karo Pharma
  Company Number: FR-Karo Pharma-2168327

PATIENT
  Age: 32 Year
  Sex: Female
  Weight: 84 kg

DRUGS (4)
  1. TERBINAFINE [Suspect]
     Active Substance: TERBINAFINE
     Indication: Onychomycosis
  2. TERBINAFINE [Suspect]
     Active Substance: TERBINAFINE
     Indication: Intervertebral disc protrusion
  3. ACETAMINOPHEN [Suspect]
     Active Substance: ACETAMINOPHEN
  4. PIVMECILLINAM HYDROCHLORIDE [Suspect]
     Active Substance: PIVMECILLINAM HYDROCHLORIDE

REACTIONS (1)
  - Pancreatitis acute [Recovering/Resolving]
